FAERS Safety Report 21913540 (Version 2)
Quarter: 2023Q1

REPORT INFORMATION
  Report Type: Spontaneous
  Country: PL (occurrence: PL)
  Receive Date: 20230125
  Receipt Date: 20230203
  Transmission Date: 20230417
  Serious: Yes (Other)
  Sender: FDA-Public Use
  Company Number: PL-MLMSERVICE-20221027-3882500-1

PATIENT
  Age: 11 Year
  Sex: Female

DRUGS (11)
  1. GANCICLOVIR [Suspect]
     Active Substance: GANCICLOVIR
     Indication: Cytomegalovirus infection reactivation
     Route: 065
  2. PENTAMIDINE [Suspect]
     Active Substance: PENTAMIDINE
     Indication: Pneumocystis jirovecii pneumonia
     Route: 065
  3. CIPROFLOXACIN [Suspect]
     Active Substance: CIPROFLOXACIN
     Indication: Cystitis haemorrhagic
     Route: 065
  4. CIDOFOVIR [Suspect]
     Active Substance: CIDOFOVIR
     Indication: Cystitis haemorrhagic
     Route: 065
  5. METHYLPREDNISOLONE [Suspect]
     Active Substance: METHYLPREDNISOLONE
     Indication: Product used for unknown indication
     Route: 065
  6. TACROLIMUS [Suspect]
     Active Substance: TACROLIMUS
     Indication: Product used for unknown indication
     Route: 065
  7. LEFLUNOMIDE [Suspect]
     Active Substance: LEFLUNOMIDE
     Indication: Cystitis haemorrhagic
     Route: 065
  8. CYCLOSPORINE [Suspect]
     Active Substance: CYCLOSPORINE
     Indication: Prophylaxis against transplant rejection
     Dosage: DOSE ADJUSTED TO GFR (45 ML/MIN/1,73M2)
     Route: 065
  9. THYMOCYTE IMMUNE GLOBULIN NOS [Suspect]
     Active Substance: THYMOCYTE IMMUNE GLOBULIN NOS
     Indication: Prophylaxis against transplant rejection
     Route: 065
  10. METHOTREXATE [Suspect]
     Active Substance: METHOTREXATE
     Indication: Prophylaxis against transplant rejection
     Route: 065
  11. OXYGEN [Suspect]
     Active Substance: OXYGEN
     Indication: Dyspnoea
     Route: 065

REACTIONS (3)
  - Chronic kidney disease [Unknown]
  - Toxicity to various agents [Unknown]
  - Multiple drug therapy [Unknown]
